FAERS Safety Report 20555039 (Version 2)
Quarter: 2022Q1

REPORT INFORMATION
  Report Type: Other
  Country: MX (occurrence: None)
  Receive Date: 20220304
  Receipt Date: 20220329
  Transmission Date: 20220424
  Serious: Yes (Other)
  Sender: FDA-Public Use
  Company Number: MX-ROCHE-3041512

PATIENT
  Sex: Female

DRUGS (1)
  1. OCREVUS [Suspect]
     Active Substance: OCRELIZUMAB
     Indication: Multiple sclerosis
     Dosage: OCRELIZUMAB VIAL 300MG/10ML (30MG/ML)
     Route: 042
     Dates: start: 20201217

REACTIONS (2)
  - JC virus infection [Not Recovered/Not Resolved]
  - JC virus infection [Not Recovered/Not Resolved]
